FAERS Safety Report 13776428 (Version 1)
Quarter: 2017Q3

REPORT INFORMATION
  Report Type: Spontaneous
  Country: IT (occurrence: IT)
  Receive Date: 20170720
  Receipt Date: 20170720
  Transmission Date: 20171127
  Serious: Yes (Hospitalization)
  Sender: FDA-Public Use
  Company Number: IT-PFIZER INC-2061264

PATIENT
  Age: 73 Year
  Sex: Male

DRUGS (3)
  1. EPSOCLAR [Suspect]
     Active Substance: HEPARIN SODIUM
     Indication: PULMONARY EMBOLISM
     Dosage: 18 IU, DAILY
     Route: 042
     Dates: start: 20131015, end: 20131023
  2. CARDIOASPIRIN [Suspect]
     Active Substance: ASPIRIN
     Indication: PULMONARY EMBOLISM
     Dosage: 100 MG, TOTAL
     Route: 048
     Dates: start: 20131015, end: 20131017
  3. COUMADIN [Suspect]
     Active Substance: WARFARIN SODIUM
     Indication: PULMONARY EMBOLISM
     Dosage: 8.75 MG, TOTAL
     Route: 048
     Dates: start: 20131015, end: 20131017

REACTIONS (1)
  - Anaemia [Recovering/Resolving]

NARRATIVE: CASE EVENT DATE: 20131017
